FAERS Safety Report 7643247-3 (Version None)
Quarter: 2011Q3

REPORT INFORMATION
  Report Type: 
  Country: None (occurrence: None)
  Receive Date: 20110729
  Receipt Date: 20110719
  Transmission Date: 20111222
  Serious: No
  Sender: FDA-Public Use
  Company Number: US-BIOGENIDEC-2011BI027004

PATIENT
  Age: 42 Year
  Sex: Female

DRUGS (2)
  1. TYSABRI [Suspect]
     Indication: MULTIPLE SCLEROSIS
     Route: 042
     Dates: start: 20070918
  2. TYSABRI [Suspect]
     Route: 042
     Dates: start: 20070305, end: 20070710

REACTIONS (3)
  - VULVOVAGINAL DRYNESS [None]
  - NAUSEA [None]
  - HOT FLUSH [None]
